FAERS Safety Report 5246485-2 (Version None)
Quarter: 2007Q1

REPORT INFORMATION
  Report Type: 
  Country: None (occurrence: None)
  Receive Date: 20070226
  Receipt Date: 20070215
  Transmission Date: 20070707
  Serious: Yes (Hospitalization)
  Sender: FDA-Public Use
  Company Number: GB-BRISTOL-MYERS SQUIBB COMPANY-13445853

PATIENT
  Age: 60 Year
  Sex: Female

DRUGS (3)
  1. CISPLATIN [Suspect]
     Indication: METASTATIC GASTRIC CANCER
     Route: 041
     Dates: start: 20060629, end: 20060629
  2. FLUOROURACIL [Suspect]
     Indication: METASTATIC GASTRIC CANCER
     Route: 041
     Dates: start: 20060629, end: 20060704
  3. VITAMIN B-12 [Concomitant]
     Indication: VITAMIN SUPPLEMENTATION
     Route: 030
     Dates: start: 19910101

REACTIONS (1)
  - DEHYDRATION [None]
